FAERS Safety Report 20792407 (Version 1)
Quarter: 2022Q2

REPORT INFORMATION
  Report Type: Spontaneous
  Country: NL (occurrence: NL)
  Receive Date: 20220506
  Receipt Date: 20220506
  Transmission Date: 20220721
  Serious: Yes (Other)
  Sender: FDA-Public Use
  Company Number: NL-STRIDES ARCOLAB LIMITED-2022SP005042

PATIENT
  Sex: Female

DRUGS (7)
  1. DEXAMETHASONE [Suspect]
     Active Substance: DEXAMETHASONE
     Indication: Glomerulonephritis membranous
     Dosage: UNK
     Route: 065
     Dates: start: 20190528
  2. MYCOPHENOLATE MOFETIL [Suspect]
     Active Substance: MYCOPHENOLATE MOFETIL
     Indication: Glomerulonephritis membranous
     Dosage: UNK
     Route: 065
     Dates: start: 201606
  3. PREDNISOLONE [Suspect]
     Active Substance: PREDNISOLONE
     Indication: Glomerulonephritis membranous
     Dosage: UNK
     Route: 065
     Dates: start: 201606
  4. RITUXIMAB [Suspect]
     Active Substance: RITUXIMAB
     Indication: Glomerulonephritis membranous
     Dosage: 2X1 GRAM PER DAY (INFUSION)
     Route: 042
     Dates: start: 201606
  5. RITUXIMAB [Suspect]
     Active Substance: RITUXIMAB
     Dosage: 1 GRAM (INFUSION), RE-INTRODUCED
     Route: 042
  6. CYCLOPHOSPHAMIDE [Suspect]
     Active Substance: CYCLOPHOSPHAMIDE
     Indication: Glomerulonephritis membranous
     Dosage: 1.5 MILLIGRAM/KILOGRAM, PER DAY
     Route: 048
     Dates: start: 20180907
  7. BORTEZOMIB [Suspect]
     Active Substance: BORTEZOMIB
     Indication: Glomerulonephritis membranous
     Dosage: UNK, CYCLICAL (2 CYCLES)
     Route: 065
     Dates: start: 20190528

REACTIONS (3)
  - Neuropathy peripheral [Unknown]
  - Drug ineffective [Unknown]
  - Off label use [Unknown]

NARRATIVE: CASE EVENT DATE: 20190701
